FAERS Safety Report 18162290 (Version 2)
Quarter: 2020Q4

REPORT INFORMATION
  Report Type: Spontaneous
  Country: US (occurrence: US)
  Receive Date: 20200818
  Receipt Date: 20201119
  Transmission Date: 20210113
  Serious: Yes (Hospitalization, Other)
  Sender: FDA-Public Use
  Company Number: US-PFIZER INC-2020313552

PATIENT
  Age: 52 Year
  Sex: Male

DRUGS (5)
  1. GEMCITABINE HYDROCHLORIDE. [Suspect]
     Active Substance: GEMCITABINE HYDROCHLORIDE
     Indication: NON-SMALL CELL LUNG CANCER STAGE IV
     Dosage: UNK (DOSES FIVE AND SIX WERE ADMINISTERED 3 WEEKS LATER)
  2. GEMCITABINE HYDROCHLORIDE. [Suspect]
     Active Substance: GEMCITABINE HYDROCHLORIDE
     Indication: DYSPNOEA
     Dosage: 850 MG/M2, WEEKLY (TWO WEEKLY COURSE)
  3. GEMCITABINE HYDROCHLORIDE. [Suspect]
     Active Substance: GEMCITABINE HYDROCHLORIDE
     Indication: PULMONARY MASS
     Dosage: UNK (FOURTH DOSE 1 WEEK AFTER HIS THIRD)
  4. PACLITAXEL. [Concomitant]
     Active Substance: PACLITAXEL
     Indication: METASTASES TO BONE
     Dosage: UNK, CYCLIC (SIX ADDITIONAL CYCLES)
  5. CARBOPLATIN. [Concomitant]
     Active Substance: CARBOPLATIN
     Indication: METASTASES TO BONE
     Dosage: UNK, CYCLIC (SIX ADDITIONAL CYCLES)

REACTIONS (2)
  - Myelosuppression [Unknown]
  - Interstitial lung disease [Recovered/Resolved]
